FAERS Safety Report 8156651-4 (Version None)
Quarter: 2012Q1

REPORT INFORMATION
  Report Type: 
  Country: None (occurrence: None)
  Receive Date: 20120216
  Receipt Date: 20120201
  Transmission Date: 20120608
  Serious: Yes (Hospitalization)
  Sender: FDA-Public Use
  Company Number: 20120028

PATIENT
  Age: 42 Year
  Sex: Female

DRUGS (2)
  1. SODIUM CHLORIDE INJECTION, USP (2810-25) 0.9% [Suspect]
     Indication: PROPHYLAXIS
     Dosage: 10 ML INTRATHECAL
     Route: 037
  2. SPINAL ANESTHESIA [Concomitant]

REACTIONS (12)
  - CAESAREAN SECTION [None]
  - BACK PAIN [None]
  - BLOOD PRESSURE SYSTOLIC INCREASED [None]
  - NAUSEA [None]
  - HEART RATE INCREASED [None]
  - HYPOAESTHESIA [None]
  - MATERNAL EXPOSURE DURING PREGNANCY [None]
  - ANAESTHETIC COMPLICATION [None]
  - PARAESTHESIA [None]
  - PAIN IN EXTREMITY [None]
  - PROCEDURAL HEADACHE [None]
  - INJECTION SITE INJURY [None]
